FAERS Safety Report 8048137-2 (Version None)
Quarter: 2012Q1

REPORT INFORMATION
  Report Type: 
  Country: None (occurrence: None)
  Receive Date: 20120112
  Receipt Date: 20120112
  Transmission Date: 20120608
  Serious: Yes (Hospitalization)
  Sender: FDA-Public Use
  Company Number: None

PATIENT
  Age: 11 Year
  Sex: Male
  Weight: 32.2054 kg

DRUGS (5)
  1. CITALOPRAM [Concomitant]
  2. DEPAKOTE ER [Suspect]
     Indication: ABNORMAL BEHAVIOUR
     Dosage: 1 CAPSULE 2 AM 2 CAPSULES 2 PM PO
     Route: 048
  3. CLONIDINE [Concomitant]
  4. INTUNIV [Concomitant]
  5. STRATTERA [Concomitant]

REACTIONS (1)
  - PANCREATITIS [None]
